FAERS Safety Report 5676939-6 (Version None)
Quarter: 2008Q1

REPORT INFORMATION
  Report Type: 
  Country: None (occurrence: None)
  Receive Date: 20080324
  Receipt Date: 20080319
  Transmission Date: 20080703
  Serious: Yes (Death)
  Sender: FDA-Public Use
  Company Number: FR-BRISTOL-MYERS SQUIBB COMPANY-14120422

PATIENT
  Sex: Male

DRUGS (3)
  1. CISPLATIN [Suspect]
     Indication: GERM CELL CANCER
     Route: 042
  2. ETOPOSIDE [Suspect]
     Indication: GERM CELL CANCER
     Route: 042
  3. BLEOMYCIN SULFATE [Suspect]
     Indication: GERM CELL CANCER
     Route: 042

REACTIONS (1)
  - ACUTE RESPIRATORY FAILURE [None]
